FAERS Safety Report 18750051 (Version 1)
Quarter: 2021Q1

REPORT INFORMATION
  Report Type: Spontaneous
  Country: US (occurrence: US)
  Receive Date: 20210118
  Receipt Date: 20210118
  Transmission Date: 20210419
  Serious: No
  Sender: FDA-Public Use
  Company Number: US-ELI_LILLY_AND_COMPANY-US202101005426

PATIENT

DRUGS (2)
  1. CYMBALTA [Suspect]
     Active Substance: DULOXETINE HYDROCHLORIDE
     Indication: DEPRESSION
  2. CYMBALTA [Suspect]
     Active Substance: DULOXETINE HYDROCHLORIDE
     Indication: MOOD SWINGS
     Dosage: 60 MG, UNKNOWN
     Route: 048

REACTIONS (11)
  - Mood swings [Unknown]
  - Constipation [Unknown]
  - Hyperhidrosis [Unknown]
  - Depression [Unknown]
  - Blood pressure abnormal [Unknown]
  - Visual impairment [Unknown]
  - Urinary hesitation [Unknown]
  - Dizziness [Unknown]
  - Haemorrhage [Unknown]
  - Dysphagia [Unknown]
  - Palpitations [Unknown]
